FAERS Safety Report 6466188-6 (Version None)
Quarter: 2009Q4

REPORT INFORMATION
  Report Type: 
  Country: None (occurrence: None)
  Receive Date: 20091201
  Receipt Date: 20091201
  Transmission Date: 20100525
  Serious: Yes (Hospitalization)
  Sender: FDA-Public Use
  Company Number: None

PATIENT
  Age: 85 Year
  Sex: Male

DRUGS (2)
  1. AMINOPHYLLINE [Suspect]
     Dosage: 75MG X1 IV
     Route: 042
     Dates: start: 20091021, end: 20091021
  2. DIPYRAMIDOL [Concomitant]

REACTIONS (6)
  - ANXIETY [None]
  - APHASIA [None]
  - BLOOD GLUCOSE INCREASED [None]
  - DYSTONIA [None]
  - EYE ROLLING [None]
  - PROCEDURAL COMPLICATION [None]
